FAERS Safety Report 5277346-0 (Version None)
Quarter: 2007Q1

REPORT INFORMATION
  Report Type: 
  Country: None (occurrence: None)
  Receive Date: 20070327
  Receipt Date: 20070321
  Transmission Date: 20070707
  Serious: Yes (Other)
  Sender: FDA-Public Use
  Company Number: HQWYE508322MAR07

PATIENT

DRUGS (5)
  1. INDERAL [Suspect]
     Dosage: NOT PROVIDED
     Route: 065
  2. NAPROXEN [Suspect]
     Dosage: NOT PROVIDED
     Route: 065
  3. FLEXERIL [Suspect]
     Dosage: NOT PROVIDED
     Route: 065
  4. CELEXA [Suspect]
     Dosage: NOT PROVIDED
     Route: 065
  5. DARVOCET-N 100 [Suspect]
     Dosage: NOT PROVIDED
     Route: 065

REACTIONS (1)
  - DRUG SCREEN FALSE POSITIVE [None]
